FAERS Safety Report 22079225 (Version 2)
Quarter: 2023Q2

REPORT INFORMATION
  Report Type: Spontaneous
  Country: US (occurrence: US)
  Receive Date: 20230309
  Receipt Date: 20230525
  Transmission Date: 20230721
  Serious: No
  Sender: FDA-Public Use
  Company Number: US-BRISTOL-MYERS SQUIBB COMPANY-2023-034343

PATIENT
  Age: 65 Year
  Sex: Female

DRUGS (2)
  1. REVLIMID [Suspect]
     Active Substance: LENALIDOMIDE
     Indication: Plasma cell myeloma
     Route: 048
     Dates: start: 20230210
  2. REVLIMID [Suspect]
     Active Substance: LENALIDOMIDE
     Dosage: FREQUENCY:  FOR 21 DAYS ON THEN 7 DAYS OFF
     Route: 048
     Dates: start: 202302

REACTIONS (10)
  - Anxiety [Unknown]
  - Headache [Unknown]
  - Fatigue [Unknown]
  - Back pain [Unknown]
  - Dizziness [Unknown]
  - Vision blurred [Unknown]
  - Visual acuity reduced [Unknown]
  - Balance disorder [Unknown]
  - Muscular weakness [Unknown]
  - Fall [Unknown]
